FAERS Safety Report 7426875-X (Version None)
Quarter: 2011Q2

REPORT INFORMATION
  Report Type: 
  Country: None (occurrence: None)
  Receive Date: 20110420
  Receipt Date: 20110414
  Transmission Date: 20111010
  Serious: Yes (Hospitalization)
  Sender: FDA-Public Use
  Company Number: BE-ABBOTT-11P-013-0719118-00

PATIENT
  Sex: Male
  Weight: 64.9 kg

DRUGS (2)
  1. HUMIRA [Suspect]
     Indication: RHEUMATOID ARTHRITIS
     Dates: start: 20060322, end: 20110201
  2. DEPRONAL [Concomitant]
     Indication: ARTHRITIS

REACTIONS (13)
  - HYPERTENSIVE CRISIS [None]
  - HYPOKALAEMIA [None]
  - BRONCHITIS [None]
  - DYSPNOEA [None]
  - RALES [None]
  - PAIN IN EXTREMITY [None]
  - RENAL FAILURE [None]
  - CARDIAC FAILURE [None]
  - ACUTE PULMONARY OEDEMA [None]
  - INFLAMMATION [None]
  - ISCHAEMIC CARDIOMYOPATHY [None]
  - RHEUMATOID ARTHRITIS [None]
  - HYPERURICAEMIA [None]
